FAERS Safety Report 4714072-8 (Version None)
Quarter: 2005Q3

REPORT INFORMATION
  Report Type: 
  Country: None (occurrence: None)
  Receive Date: 20050714
  Receipt Date: 20050119
  Transmission Date: 20060218
  Serious: Yes (Other)
  Sender: FDA-Public Use
  Company Number: PHHO2005CA01364

PATIENT
  Age: 35 Year
  Sex: Female

DRUGS (2)
  1. ZELNORM [Suspect]
     Indication: IRRITABLE BOWEL SYNDROME
     Dosage: 4 MG, BID
     Route: 048
     Dates: start: 20040608
  2. BEXTRA [Concomitant]

REACTIONS (2)
  - ABDOMINAL PAIN [None]
  - OVARIAN CYST [None]
